FAERS Safety Report 5072852-6 (Version None)
Quarter: 2006Q3

REPORT INFORMATION
  Report Type: 
  Country: None (occurrence: None)
  Receive Date: 20060807
  Receipt Date: 20060725
  Transmission Date: 20061208
  Serious: Yes (Hospitalization)
  Sender: FDA-Public Use
  Company Number: FR-NOVOPROD-255670

PATIENT
  Age: 83 Year
  Sex: Male

DRUGS (11)
  1. MIXTARD HUMAN 70/30 [Suspect]
     Indication: DIABETES MELLITUS
  2. PLAVIX [Concomitant]
  3. FLECAINIDE ACETATE [Concomitant]
  4. ATORVASTATIN CALCIUM [Concomitant]
  5. ADANCOR [Concomitant]
  6. SINEMET [Concomitant]
  7. NEXIUM [Concomitant]
  8. DOLIPRANE [Concomitant]
  9. LASILIX [Concomitant]
  10. ARICEPT [Concomitant]
  11. FORLAX [Concomitant]

REACTIONS (2)
  - CHEST PAIN [None]
  - HYPOGLYCAEMIA [None]
